FAERS Safety Report 6640565-2 (Version None)
Quarter: 2010Q1

REPORT INFORMATION
  Report Type: 
  Country: None (occurrence: None)
  Receive Date: 20100318
  Receipt Date: 20100309
  Transmission Date: 20100710
  Serious: Yes (Death, Hospitalization)
  Sender: FDA-Public Use
  Company Number: AU-ELI_LILLY_AND_COMPANY-AU200912003532

PATIENT
  Sex: Male
  Weight: 65.5 kg

DRUGS (8)
  1. PEMETREXED [Suspect]
     Indication: NON-SMALL CELL LUNG CANCER STAGE III
     Dosage: 500 MG/M2, EVERY 21 DAYS
     Route: 042
     Dates: start: 20090702
  2. CISPLATIN [Suspect]
     Indication: NON-SMALL CELL LUNG CANCER STAGE III
     Dosage: 75 MG/M2, EVERY 21 DAYS
     Route: 042
     Dates: start: 20090702, end: 20090820
  3. RADIATION [Suspect]
     Indication: NON-SMALL CELL LUNG CANCER STAGE III
     Dosage: 2 GY X 21
     Dates: start: 20090702, end: 20090818
  4. FOLIC ACID [Concomitant]
     Indication: PROPHYLAXIS
     Dates: start: 20090625
  5. DEXAMETHASONE [Concomitant]
     Indication: PROPHYLAXIS
     Dates: start: 20090701
  6. DIGOXIN [Concomitant]
     Indication: ATRIAL FIBRILLATION
  7. CARDIA [Concomitant]
     Indication: ATRIAL FIBRILLATION
  8. NEXIUM [Concomitant]
     Indication: ABDOMINAL PAIN UPPER
     Dates: start: 20091210

REACTIONS (1)
  - PNEUMOCYSTIS JIROVECI PNEUMONIA [None]
